FAERS Safety Report 5296482-6 (Version None)
Quarter: 2007Q2

REPORT INFORMATION
  Report Type: 
  Country: None (occurrence: None)
  Receive Date: 20070413
  Receipt Date: 20070402
  Transmission Date: 20071010
  Serious: Yes (Death)
  Sender: FDA-Public Use
  Company Number: GB-PFIZER INC-2006019517

PATIENT
  Sex: Male

DRUGS (1)
  1. SU-011,248 [Suspect]
     Indication: RENAL CELL CARCINOMA STAGE UNSPECIFIED
     Route: 048
     Dates: start: 20060111, end: 20060208

REACTIONS (6)
  - CONFUSIONAL STATE [None]
  - DEHYDRATION [None]
  - DISEASE PROGRESSION [None]
  - JAUNDICE [None]
  - RENAL CELL CARCINOMA STAGE UNSPECIFIED [None]
  - URINARY TRACT INFECTION [None]
